FAERS Safety Report 25218269 (Version 3)
Quarter: 2025Q2

REPORT INFORMATION
  Report Type: Spontaneous
  Country: US (occurrence: US)
  Receive Date: 20250421
  Receipt Date: 20250528
  Transmission Date: 20250716
  Serious: No
  Sender: AMGEN
  Company Number: US-AMGEN-USASP2025074859

PATIENT
  Age: 61 Year
  Sex: Female
  Weight: 97.959 kg

DRUGS (3)
  1. AMJEVITA [Suspect]
     Active Substance: ADALIMUMAB-ATTO
     Indication: Psoriatic arthropathy
     Dosage: 40 MILLIGRAM/0.4 ML, Q2WK
     Route: 058
     Dates: start: 202503
  2. AMJEVITA [Suspect]
     Active Substance: ADALIMUMAB-ATTO
     Indication: Osteoarthritis
  3. Alcohol prep pad [Concomitant]
     Route: 065

REACTIONS (6)
  - Injection site haemorrhage [Unknown]
  - Injection site bruising [Unknown]
  - Wrong technique in product usage process [Unknown]
  - Device difficult to use [Unknown]
  - Drug dose omission by device [Unknown]
  - Product communication issue [Unknown]

NARRATIVE: CASE EVENT DATE: 20250413
